FAERS Safety Report 10171352 (Version 1)
Quarter: 2014Q2

REPORT INFORMATION
  Report Type: Spontaneous
  Country: GB (occurrence: None)
  Receive Date: 20140512
  Receipt Date: 20140512
  Transmission Date: 20141212
  Serious: Yes (Congenital Anomaly)
  Sender: FDA-Public Use
  Company Number: IMP_07632_2014

PATIENT
  Sex: Female
  Weight: 3.8 kg

DRUGS (1)
  1. SODIUM VALPROATE (SODIUM VALPROATE) [Suspect]
     Indication: MATERNAL EXPOSURE TIMING UNSPECIFIED
     Route: 064

REACTIONS (6)
  - Foetal anticonvulsant syndrome [None]
  - Congenital nose malformation [None]
  - Choroidal coloboma [None]
  - Speech disorder developmental [None]
  - Congenital jaw malformation [None]
  - Maternal drugs affecting foetus [None]
